FAERS Safety Report 17759001 (Version 1)
Quarter: 2020Q2

REPORT INFORMATION
  Report Type: Spontaneous
  Country: FR (occurrence: FR)
  Receive Date: 20200508
  Receipt Date: 20200508
  Transmission Date: 20200714
  Serious: Yes (Hospitalization, Other)
  Sender: FDA-Public Use
  Company Number: FR-TEVA-2020-FR-1234754

PATIENT
  Age: 58 Year
  Sex: Female

DRUGS (7)
  1. DIFFU-K [Concomitant]
     Active Substance: POTASSIUM CHLORIDE
     Indication: CARDIAC DISORDER
     Dates: start: 201709
  2. ACTONEL [Suspect]
     Active Substance: RISEDRONATE SODIUM
     Dosage: 1 TABLET ONCE WEEKLY ORALLY
     Route: 048
     Dates: start: 201910
  3. EBASTINE [Concomitant]
     Active Substance: EBASTINE
     Indication: ASTHMA
  4. CORTISONE [Concomitant]
     Active Substance: CORTISONE
     Dosage: IN MORNINGS
     Dates: start: 201709
  5. IMUREL [Concomitant]
     Active Substance: AZATHIOPRINE SODIUM
     Dosage: IN MORNING
     Dates: start: 201709
  6. CELLCEPT [Concomitant]
     Active Substance: MYCOPHENOLATE MOFETIL\MYCOPHENOLATE MOFETIL HYDROCHLORIDE
     Dosage: IN MORNINGS AND EVENINGS
     Dates: start: 201709
  7. INEXIUM [Concomitant]
     Active Substance: ESOMEPRAZOLE
     Dates: start: 201709

REACTIONS (7)
  - Gastric dilatation [Unknown]
  - Dyspnoea [Unknown]
  - Eructation [Unknown]
  - Muscular weakness [Unknown]
  - Gastrooesophageal reflux disease [Unknown]
  - Abdominal pain [Unknown]
  - Gait disturbance [Unknown]

NARRATIVE: CASE EVENT DATE: 2019
